FAERS Safety Report 5450121-X (Version None)
Quarter: 2007Q3

REPORT INFORMATION
  Report Type: 
  Country: None (occurrence: None)
  Receive Date: 20070912
  Receipt Date: 20070905
  Transmission Date: 20080115
  Serious: Yes (Other)
  Sender: FDA-Public Use
  Company Number: A0678872A

PATIENT
  Age: 40 Year
  Sex: Female

DRUGS (15)
  1. WELLBUTRIN XL [Suspect]
     Indication: DEPRESSION
     Dosage: 450MG PER DAY
     Route: 048
     Dates: start: 20060301
  2. ABILIFY [Concomitant]
  3. EFFEXOR [Concomitant]
  4. TOPAMAX [Concomitant]
  5. STRATTERA [Concomitant]
  6. KLONOPIN [Concomitant]
  7. AMOXICILLIN [Concomitant]
  8. ALBUTEROL [Concomitant]
  9. ADVAIR DISKUS 100/50 [Concomitant]
  10. LASIX [Concomitant]
  11. SYNTHROID [Concomitant]
  12. DETROL LA [Concomitant]
  13. AGGRENOX [Concomitant]
  14. FLONASE [Concomitant]
  15. ALLEGRA [Concomitant]

REACTIONS (1)
  - HEPATIC ENZYME INCREASED [None]
